FAERS Safety Report 23579686 (Version 1)
Quarter: 2024Q1

REPORT INFORMATION
  Report Type: Spontaneous
  Country: CN (occurrence: CN)
  Receive Date: 20240229
  Receipt Date: 20240229
  Transmission Date: 20240409
  Serious: Yes (Other)
  Sender: FDA-Public Use
  Company Number: CN-009507513-2402CHN008478

PATIENT
  Age: 79 Year
  Sex: Female
  Weight: 70 kg

DRUGS (1)
  1. CILASTATIN SODIUM\IMIPENEM [Suspect]
     Active Substance: CILASTATIN SODIUM\IMIPENEM
     Indication: Pneumonia
     Dosage: 0.5 GRAM, Q8H
     Route: 041
     Dates: start: 20231216, end: 20231226

REACTIONS (1)
  - Drug eruption [Recovering/Resolving]

NARRATIVE: CASE EVENT DATE: 20231225
